FAERS Safety Report 12399682 (Version 1)
Quarter: 2016Q2

REPORT INFORMATION
  Report Type: Spontaneous
  Country: US (occurrence: US)
  Receive Date: 20160524
  Receipt Date: 20160524
  Transmission Date: 20160815
  Serious: Yes (Hospitalization)
  Sender: FDA-Public Use
  Company Number: US-MYLANLABS-2016M1021451

PATIENT

DRUGS (3)
  1. LIDOCAINE. [Suspect]
     Active Substance: LIDOCAINE
     Dosage: TWO DOSES, TOTAL 18ML, ROUTE: PERIOSTEAL
     Route: 050
  2. LIDOCAINE. [Suspect]
     Active Substance: LIDOCAINE
     Dosage: TWO DOSES, TOTAL 18ML
     Route: 058
  3. LIDOCAINE. [Suspect]
     Active Substance: LIDOCAINE
     Indication: LOCAL ANAESTHESIA
     Dosage: 5 ML OF 2% (100MG) LOCALLY, RECEIVED TWO MORE INJECTIONS
     Route: 050

REACTIONS (1)
  - Hoigne^s syndrome [Recovering/Resolving]
